FAERS Safety Report 12368873 (Version 4)
Quarter: 2016Q2

REPORT INFORMATION
  Report Type: Report from Study
  Country: CA (occurrence: CA)
  Receive Date: 20160513
  Receipt Date: 20160620
  Transmission Date: 20160815
  Serious: Yes (Hospitalization, Other)
  Sender: FDA-Public Use
  Company Number: CA-BAYER-2016-080652

PATIENT
  Age: 74 Year
  Sex: Female

DRUGS (16)
  1. ADEMPAS [Suspect]
     Active Substance: RIOCIGUAT
     Indication: PULMONARY ARTERIAL HYPERTENSION
     Dosage: 1.0 MG, TID
     Route: 048
  2. PREDNISONE. [Concomitant]
     Active Substance: PREDNISONE
  3. HYTRIN [Concomitant]
     Active Substance: TERAZOSIN HYDROCHLORIDE
  4. CRESTOR [Concomitant]
     Active Substance: ROSUVASTATIN CALCIUM
  5. DILANTIN [Concomitant]
     Active Substance: PHENYTOIN
  6. ADEMPAS [Suspect]
     Active Substance: RIOCIGUAT
     Indication: PULMONARY ARTERIAL HYPERTENSION
     Dosage: 0.5 MG, TID
     Route: 048
     Dates: start: 20160420
  7. ADEMPAS [Suspect]
     Active Substance: RIOCIGUAT
     Indication: PULMONARY ARTERIAL HYPERTENSION
     Dosage: 1.5 MG, TID
     Route: 048
     Dates: end: 201606
  8. ADEMPAS [Suspect]
     Active Substance: RIOCIGUAT
     Indication: PULMONARY ARTERIAL HYPERTENSION
     Dosage: 2 MG, TID
     Route: 048
     Dates: start: 201606, end: 201606
  9. VENTOLIN [Concomitant]
     Active Substance: ALBUTEROL SULFATE
  10. THYROXINE [Concomitant]
     Active Substance: LEVOTHYROXINE
  11. TRAMADOL. [Concomitant]
     Active Substance: TRAMADOL
  12. OXYGEN. [Concomitant]
     Active Substance: OXYGEN
     Dosage: 6 L, Q1MIN
  13. VITAMIN D [Concomitant]
     Active Substance: CHOLECALCIFEROL
  14. SPIRIVA [Concomitant]
     Active Substance: TIOTROPIUM BROMIDE MONOHYDRATE
  15. LASIX [Concomitant]
     Active Substance: FUROSEMIDE
  16. ADVAIR HFA [Concomitant]
     Active Substance: FLUTICASONE PROPIONATE\SALMETEROL XINAFOATE

REACTIONS (8)
  - White blood cell count increased [Not Recovered/Not Resolved]
  - Hypophagia [Not Recovered/Not Resolved]
  - Nerve compression [None]
  - Dyspnoea [Not Recovered/Not Resolved]
  - Renal failure [Not Recovered/Not Resolved]
  - Muscular weakness [Not Recovered/Not Resolved]
  - Depression suicidal [Not Recovered/Not Resolved]
  - Hospitalisation [Recovered/Resolved]

NARRATIVE: CASE EVENT DATE: 20160423
